FAERS Safety Report 17863152 (Version 5)
Quarter: 2022Q1

REPORT INFORMATION
  Report Type: Spontaneous
  Country: US (occurrence: US)
  Receive Date: 20200604
  Receipt Date: 20220119
  Transmission Date: 20220423
  Serious: Yes (Other)
  Sender: FDA-Public Use
  Company Number: US-GILEAD-2020-0469911

PATIENT
  Age: 62 Year
  Sex: Male
  Weight: 81.633 kg

DRUGS (82)
  1. TRUVADA [Suspect]
     Active Substance: EMTRICITABINE\TENOFOVIR DISOPROXIL FUMARATE
     Indication: HIV infection
     Dosage: UNK
     Route: 048
     Dates: start: 200804, end: 201303
  2. TRUVADA [Suspect]
     Active Substance: EMTRICITABINE\TENOFOVIR DISOPROXIL FUMARATE
     Dosage: UNK
     Route: 048
     Dates: start: 201402, end: 201702
  3. TRUVADA [Suspect]
     Active Substance: EMTRICITABINE\TENOFOVIR DISOPROXIL FUMARATE
     Dosage: UNK
     Route: 048
     Dates: start: 201402, end: 201507
  4. TRUVADA [Suspect]
     Active Substance: EMTRICITABINE\TENOFOVIR DISOPROXIL FUMARATE
     Dosage: UNK
     Route: 048
     Dates: start: 201509, end: 201702
  5. COMPLERA [Suspect]
     Active Substance: EMTRICITABINE\RILPIVIRINE HYDROCHLORIDE\TENOFOVIR DISOPROXIL FUMARATE
     Indication: HIV infection
     Dosage: UNK
     Route: 048
     Dates: start: 201303, end: 201402
  6. COMPLERA [Suspect]
     Active Substance: EMTRICITABINE\RILPIVIRINE HYDROCHLORIDE\TENOFOVIR DISOPROXIL FUMARATE
     Dosage: UNK
     Route: 048
     Dates: start: 201303, end: 201401
  7. ATRIPLA [Suspect]
     Active Substance: EFAVIRENZ\EMTRICITABINE\TENOFOVIR DISOPROXIL FUMARATE
     Indication: HIV infection
     Dosage: UNK
     Route: 048
     Dates: start: 200804, end: 201303
  8. BIKTARVY [Concomitant]
     Active Substance: BICTEGRAVIR SODIUM\EMTRICITABINE\TENOFOVIR ALAFENAMIDE FUMARATE
  9. DESCOVY [Concomitant]
     Active Substance: EMTRICITABINE\TENOFOVIR ALAFENAMIDE FUMARATE
  10. AMOXICILLIN [Concomitant]
     Active Substance: AMOXICILLIN
  11. ASPIRIN [Concomitant]
     Active Substance: ASPIRIN
  12. OMEPRAZOLE [Concomitant]
     Active Substance: OMEPRAZOLE
  13. PREDNISOLONE [Concomitant]
     Active Substance: PREDNISOLONE
  14. RANITIDINE [Concomitant]
     Active Substance: RANITIDINE
  15. EPIVIR [Concomitant]
     Active Substance: LAMIVUDINE
  16. ISENTRESS [Concomitant]
     Active Substance: RALTEGRAVIR POTASSIUM
  17. TIVICAY [Concomitant]
     Active Substance: DOLUTEGRAVIR SODIUM
  18. TRIUMEQ [Concomitant]
     Active Substance: ABACAVIR SULFATE\DOLUTEGRAVIR SODIUM\LAMIVUDINE
  19. VIRACEPT [Concomitant]
     Active Substance: NELFINAVIR MESYLATE
  20. ZERIT [Concomitant]
     Active Substance: STAVUDINE
  21. HYDROCHLOROTHIAZIDE\TRIAMTERENE [Concomitant]
     Active Substance: HYDROCHLOROTHIAZIDE\TRIAMTERENE
  22. ATORVASTATIN CALCIUM [Concomitant]
     Active Substance: ATORVASTATIN CALCIUM
  23. IBUPROFEN [Concomitant]
     Active Substance: IBUPROFEN
  24. DICLOFENAC [Concomitant]
     Active Substance: DICLOFENAC
  25. DOCUSATE [Concomitant]
     Active Substance: DOCUSATE
  26. SENNOSIDES [Concomitant]
     Active Substance: SENNOSIDES
  27. MIRALAX [Concomitant]
     Active Substance: POLYETHYLENE GLYCOL 3350
  28. METOPROLOL TARTRATE [Concomitant]
     Active Substance: METOPROLOL TARTRATE
  29. CLOTRIMAZOLE [Concomitant]
     Active Substance: CLOTRIMAZOLE
  30. CAPSAICIN [Concomitant]
     Active Substance: CAPSAICIN
  31. MELOXICAM [Concomitant]
     Active Substance: MELOXICAM
  32. SILDENAFIL [Concomitant]
     Active Substance: SILDENAFIL
  33. TIZANIDINE HYDROCHLORIDE [Concomitant]
     Active Substance: TIZANIDINE HYDROCHLORIDE
  34. TRAZODONE HCL [Concomitant]
     Active Substance: TRAZODONE HYDROCHLORIDE
  35. CHLORHEXIDINE GLUCONATE [Concomitant]
     Active Substance: CHLORHEXIDINE GLUCONATE
  36. MILK OF MAGNESIA [Concomitant]
     Active Substance: MAGNESIUM HYDROXIDE
  37. METHADONE [Concomitant]
     Active Substance: METHADONE HYDROCHLORIDE
  38. EFFEXOR [Concomitant]
     Active Substance: VENLAFAXINE HYDROCHLORIDE
  39. CIPROFLOXACIN [Concomitant]
     Active Substance: CIPROFLOXACIN
  40. LORATADINE [Concomitant]
     Active Substance: LORATADINE
  41. NALOXONE HCL [Concomitant]
     Active Substance: NALOXONE HYDROCHLORIDE
  42. BISACODYL [Concomitant]
     Active Substance: BISACODYL
  43. ACETAMINOPHEN\OXYCODONE HYDROCHLORIDE [Concomitant]
     Active Substance: ACETAMINOPHEN\OXYCODONE HYDROCHLORIDE
  44. GOLYTELY [Concomitant]
     Active Substance: POLYETHYLENE GLYCOL 3350\POTASSIUM CHLORIDE\SODIUM BICARBONATE\SODIUM CHLORIDE\SODIUM SULFATE
  45. CLINDAMYCIN HYDROCHLORIDE [Concomitant]
     Active Substance: CLINDAMYCIN HYDROCHLORIDE
  46. DOXYCYCLINE HYCLATE [Concomitant]
     Active Substance: DOXYCYCLINE HYCLATE
  47. BACITRACIN [Concomitant]
     Active Substance: BACITRACIN
  48. CEPHALEXIN [Concomitant]
     Active Substance: CEPHALEXIN
  49. PRAZOSIN HYDROCHLORIDE [Concomitant]
     Active Substance: PRAZOSIN HYDROCHLORIDE
  50. MICONAZOLE NITRATE [Concomitant]
     Active Substance: MICONAZOLE NITRATE
  51. BACLOFEN [Concomitant]
     Active Substance: BACLOFEN
  52. MORPHINE SULFATE [Concomitant]
     Active Substance: MORPHINE SULFATE
  53. HERBALS\PLANTAGO INDICA WHOLE [Concomitant]
     Active Substance: HERBALS\PLANTAGO INDICA WHOLE
  54. GABAPENTIN [Concomitant]
     Active Substance: GABAPENTIN
  55. CODEINE [Concomitant]
     Active Substance: CODEINE
  56. PREDNISOLONE ACETATE [Concomitant]
     Active Substance: PREDNISOLONE ACETATE
  57. LACTULOSE [Concomitant]
     Active Substance: LACTULOSE
  58. AZITHROMYCIN [Concomitant]
     Active Substance: AZITHROMYCIN
  59. GUAFENSIN [Concomitant]
  60. NYSTATIN [Concomitant]
     Active Substance: NYSTATIN
  61. TERAZOSIN HYDROCHLORIDE [Concomitant]
     Active Substance: TERAZOSIN HYDROCHLORIDE
  62. LEDIPASVIR [Concomitant]
     Active Substance: LEDIPASVIR
  63. CLONIDINE HYDROCHLORIDE [Concomitant]
     Active Substance: CLONIDINE HYDROCHLORIDE
  64. FLUCONAZOLE [Concomitant]
     Active Substance: FLUCONAZOLE
  65. PROCHLORPERAZINE MALEATE [Concomitant]
     Active Substance: PROCHLORPERAZINE MALEATE
  66. ONDANSETRON [Concomitant]
     Active Substance: ONDANSETRON
  67. FLUNISOLIDE [Concomitant]
     Active Substance: FLUNISOLIDE
  68. VARDENAFIL [Concomitant]
     Active Substance: VARDENAFIL HYDROCHLORIDE
  69. SERTRALINE HYDROCHLORIDE [Concomitant]
     Active Substance: SERTRALINE HYDROCHLORIDE
  70. TERBINAFINE HYDROCHLORIDE [Concomitant]
     Active Substance: TERBINAFINE HYDROCHLORIDE
  71. STAVUDINE [Concomitant]
     Active Substance: STAVUDINE
  72. ATROPINE [Concomitant]
     Active Substance: ATROPINE
  73. EMTRICITABINE [Concomitant]
     Active Substance: EMTRICITABINE
  74. CYCLOBENZAPRINE HYDROCHLORIDE [Concomitant]
     Active Substance: CYCLOBENZAPRINE HYDROCHLORIDE
  75. NICOTINE [Concomitant]
     Active Substance: NICOTINE
  76. THIAMINE [Concomitant]
     Active Substance: THIAMINE
  77. FOLATE SODIUM [Concomitant]
     Active Substance: FOLATE SODIUM
  78. AUGMENTIN [Concomitant]
     Active Substance: AMOXICILLIN\CLAVULANATE POTASSIUM
  79. DILAUDID [Concomitant]
     Active Substance: HYDROMORPHONE HYDROCHLORIDE
  80. NORCO [Concomitant]
     Active Substance: ACETAMINOPHEN\HYDROCODONE BITARTRATE
  81. DIAZEPAM [Concomitant]
     Active Substance: DIAZEPAM
  82. MOTRIN [Concomitant]
     Active Substance: IBUPROFEN

REACTIONS (7)
  - Osteoporosis [Unknown]
  - Ankle fracture [Not Recovered/Not Resolved]
  - Bone density decreased [Unknown]
  - Tooth loss [Not Recovered/Not Resolved]
  - Pain [Unknown]
  - Emotional distress [Unknown]
  - Osteoarthritis [Not Recovered/Not Resolved]

NARRATIVE: CASE EVENT DATE: 20140501
